FAERS Safety Report 7137088-3 (Version None)
Quarter: 2010Q4

REPORT INFORMATION
  Report Type: 
  Country: None (occurrence: None)
  Receive Date: 20101206
  Receipt Date: 20080414
  Transmission Date: 20110411
  Serious: Yes (Death)
  Sender: FDA-Public Use
  Company Number: US-ACTELION-A-US2005-15269

PATIENT

DRUGS (14)
  1. ILOPROST INHALATION SOLUTION 5UG US [Suspect]
     Indication: PULMONARY HYPERTENSION
     Dosage: 5 UG, 6 X DAY
     Route: 055
     Dates: start: 20050401
  2. TRACLEER [Concomitant]
     Indication: PULMONARY HYPERTENSION
     Route: 048
     Dates: start: 20070301
  3. LASIX [Concomitant]
  4. WARFARIN SODIUM [Concomitant]
  5. VERELAN [Concomitant]
  6. PERCOCET [Concomitant]
  7. CALCIUM [Concomitant]
  8. LEXAPRO [Concomitant]
  9. SUMATRIPTAN SUCCINATE [Concomitant]
  10. ZESTRIL [Concomitant]
  11. PREDNISONE [Concomitant]
  12. TRAZODONE [Concomitant]
  13. ATORVASTATIN CALCIUM [Concomitant]
  14. SILDENAFIL [Concomitant]

REACTIONS (3)
  - ABDOMINAL PAIN UPPER [None]
  - DEATH [None]
  - HEADACHE [None]
